FAERS Safety Report 6601624-3 (Version None)
Quarter: 2010Q1

REPORT INFORMATION
  Report Type: 
  Country: None (occurrence: None)
  Receive Date: 20100225
  Receipt Date: 20100212
  Transmission Date: 20100710
  Serious: Yes (Hospitalization)
  Sender: FDA-Public Use
  Company Number: DE-ROCHE-669434

PATIENT
  Sex: Female

DRUGS (1)
  1. XELODA [Suspect]
     Indication: METASTATIC GASTRIC CANCER
     Route: 065

REACTIONS (1)
  - NEPHROLITHIASIS [None]
